FAERS Safety Report 11238891 (Version 2)
Quarter: 2015Q4

REPORT INFORMATION
  Report Type: Spontaneous
  Country: GB (occurrence: GB)
  Receive Date: 20150706
  Receipt Date: 20151106
  Transmission Date: 20160304
  Serious: Yes (Other)
  Sender: FDA-Public Use
  Company Number: GB-ACCORD-031759

PATIENT
  Age: 33 Year
  Sex: Female

DRUGS (4)
  1. SERTRALINE [Suspect]
     Active Substance: SERTRALINE HYDROCHLORIDE
     Indication: DEPRESSION
     Dosage: INITIALLY RECEIVED 100 MG QD FROM MAR-2014. LATER, RECEIVED OVERDOSE ON 23-NOV-2014.
     Route: 048
     Dates: start: 201403
  2. DIAZEPAM. [Concomitant]
     Active Substance: DIAZEPAM
     Indication: ANXIETY
     Route: 048
     Dates: start: 20140317, end: 201409
  3. CLOZARIL [Suspect]
     Active Substance: CLOZAPINE
     Indication: SCHIZOPHRENIA
     Dosage: INITILLAY RECEIVED AT UNKNOWN DOSE.?ALSO RECEIVED DOSE OF 425 MG QD ORALLY FROM 01-JUN-2014.
     Route: 048
     Dates: start: 20140508
  4. HYOSCINE/HYOSCINE BORATE/HYOSCINE BUTYLBROMIDE/HYOSCINE HYDROBROMIDE/HYOSCINE METHOBROMIDE/HYOSCINE [Concomitant]
     Indication: SALIVARY HYPERSECRETION
     Dosage: 900 UG, QD
     Route: 048
     Dates: start: 20140601

REACTIONS (5)
  - White blood cell count increased [Unknown]
  - Heart rate increased [Unknown]
  - Premature delivery [Unknown]
  - Overdose [Unknown]
  - Maternal exposure during pregnancy [Unknown]

NARRATIVE: CASE EVENT DATE: 20141123
